FAERS Safety Report 14583694 (Version 3)
Quarter: 2018Q3

REPORT INFORMATION
  Report Type: Report from Study
  Country: US (occurrence: US)
  Receive Date: 20180228
  Receipt Date: 20180830
  Transmission Date: 20181010
  Serious: Yes (Hospitalization, Other)
  Sender: FDA-Public Use
  Company Number: US-ACTELION-A-NJ2015-127961

PATIENT
  Age: 45 Year
  Sex: Female
  Weight: 63.49 kg

DRUGS (2)
  1. VELETRI [Suspect]
     Active Substance: EPOPROSTENOL
     Indication: PULMONARY HYPERTENSION
     Dosage: 76 NG/KG, PER MIN
     Route: 042
     Dates: start: 20150826
  2. COUMADIN [Concomitant]
     Active Substance: WARFARIN SODIUM

REACTIONS (6)
  - Nasopharyngitis [Unknown]
  - Catheter management [Unknown]
  - Cluster headache [Unknown]
  - Sinusitis [Unknown]
  - Pancreatitis [Unknown]
  - Pain in jaw [Unknown]
